FAERS Safety Report 12505051 (Version 1)
Quarter: 2016Q2

REPORT INFORMATION
  Report Type: Spontaneous
  Country: US (occurrence: US)
  Receive Date: 20160628
  Receipt Date: 20160628
  Transmission Date: 20160815
  Serious: No
  Sender: FDA-Public Use
  Company Number: US-GLAXOSMITHKLINE-US2016GSK088792

PATIENT
  Sex: Female
  Weight: 140.59 kg

DRUGS (13)
  1. AMOXICILLIN + CLAVULANATE POTASSIUM [Suspect]
     Active Substance: AMOXICILLIN\CLAVULANATE POTASSIUM
  2. DYNACIRC [Suspect]
     Active Substance: ISRADIPINE
  3. BACTRIM [Suspect]
     Active Substance: SULFAMETHOXAZOLE\TRIMETHOPRIM
  4. SULFAMETHOXAZOLE-TRIMETHOPRIM (SMZ) [Suspect]
     Active Substance: SULFAMETHOXAZOLE\TRIMETHOPRIM
  5. CIPRO [Suspect]
     Active Substance: CIPROFLOXACIN HYDROCHLORIDE
  6. COREG [Suspect]
     Active Substance: CARVEDILOL
  7. ATENOLOL. [Suspect]
     Active Substance: ATENOLOL
  8. DIGOXIN. [Suspect]
     Active Substance: DIGOXIN
  9. PROPRANOLOL HCL [Suspect]
     Active Substance: PROPRANOLOL HYDROCHLORIDE
  10. NORVASC [Suspect]
     Active Substance: AMLODIPINE BESYLATE
  11. TENORMIN [Suspect]
     Active Substance: ATENOLOL
  12. ERYTHROMYCIN. [Suspect]
     Active Substance: ERYTHROMYCIN
  13. BIAXIN [Suspect]
     Active Substance: CLARITHROMYCIN

REACTIONS (1)
  - Drug hypersensitivity [Unknown]
